FAERS Safety Report 7215456-9 (Version None)
Quarter: 2011Q1

REPORT INFORMATION
  Report Type: 
  Country: None (occurrence: None)
  Receive Date: 20110107
  Receipt Date: 20101220
  Transmission Date: 20110831
  Serious: Yes (Congenital Anomaly)
  Sender: FDA-Public Use
  Company Number: A0681028A

PATIENT
  Sex: Male
  Weight: 2.6 kg

DRUGS (2)
  1. PAXIL [Suspect]
     Indication: DEPRESSION
     Dosage: 10MG PER DAY
     Dates: start: 20021201, end: 20040101
  2. PRENATAL VITAMINS [Concomitant]

REACTIONS (5)
  - VENTRICULAR SEPTAL DEFECT [None]
  - ATRIAL SEPTAL DEFECT [None]
  - DRUG EXPOSURE DURING PREGNANCY [None]
  - PULMONARY ARTERY STENOSIS [None]
  - CARDIAC MURMUR [None]
